FAERS Safety Report 4478473-8 (Version None)
Quarter: 2004Q4

REPORT INFORMATION
  Report Type: 
  Country: None (occurrence: None)
  Receive Date: 20041018
  Receipt Date: 20041018
  Transmission Date: 20050328
  Serious: Yes (Death)
  Sender: FDA-Public Use
  Company Number: None

PATIENT
  Age: 53 Year
  Sex: Male
  Weight: 81.6475 kg

DRUGS (5)
  1. PAXIL [Suspect]
     Indication: ANXIETY
  2. PAXIL [Suspect]
     Indication: DEPRESSION
  3. EFFEXOR [Suspect]
  4. RISPERDAL [Suspect]
     Indication: ANXIETY
  5. RISPERDAL [Suspect]
     Indication: DEPRESSION

REACTIONS (3)
  - ANGER [None]
  - COMPLETED SUICIDE [None]
  - INJURY ASPHYXIATION [None]
